FAERS Safety Report 9634010 (Version 1)
Quarter: 2013Q4

REPORT INFORMATION
  Report Type: Spontaneous
  Country: JP (occurrence: JP)
  Receive Date: 20131021
  Receipt Date: 20131021
  Transmission Date: 20140711
  Serious: Yes (Death)
  Sender: FDA-Public Use
  Company Number: JP-009507513-1310JPN007620

PATIENT
  Age: 65 Year
  Sex: Male

DRUGS (3)
  1. ESLAX [Suspect]
     Dosage: DAILY DOSE UNKNOWN, ROUTE: IV UNSPECIFIED
     Route: 042
  2. MANNIGEN [Concomitant]
     Dosage: DAILY DOSE UNKNOWN, FORMULATION: XXX
     Route: 065
  3. DIPRIVAN [Concomitant]
     Dosage: DAILY DOSE UNKNOWN, FORMULATION: XXX
     Route: 065

REACTIONS (1)
  - Hepatic function abnormal [Fatal]
